FAERS Safety Report 9400068 (Version 2)
Quarter: 2013Q3

REPORT INFORMATION
  Report Type: Spontaneous
  Country: US (occurrence: US)
  Receive Date: 20130715
  Receipt Date: 20130821
  Transmission Date: 20140515
  Serious: Yes (Other)
  Sender: FDA-Public Use
  Company Number: US-BAYER-2013-085359

PATIENT
  Age: 16 Year
  Sex: Male

DRUGS (3)
  1. MAGNEVIST [Suspect]
     Indication: ARTERIOGRAM CORONARY
     Dosage: 23 ML, OM
     Route: 042
  2. MAGNEVIST [Suspect]
     Indication: HEART DISEASE CONGENITAL
  3. MAGNEVIST [Suspect]
     Indication: FALLOT^S TETRALOGY

REACTIONS (2)
  - Urticaria [None]
  - Pruritus [None]
